FAERS Safety Report 8256763-0 (Version None)
Quarter: 2012Q2

REPORT INFORMATION
  Report Type: 
  Country: None (occurrence: None)
  Receive Date: 20120403
  Receipt Date: 20120322
  Transmission Date: 20120825
  Serious: Yes (Hospitalization, Other)
  Sender: FDA-Public Use
  Company Number: GB-BRISTOL-MYERS SQUIBB COMPANY-16481004

PATIENT
  Age: 70 Year
  Sex: Female

DRUGS (4)
  1. INSULATARD HUMAN INJECTION [Concomitant]
  2. SIMVASTATIN [Concomitant]
  3. METFORMIN HCL [Suspect]
     Dosage: INCREASED TO 1GM BID FROM AN UNKNOWN DATE
     Route: 048
     Dates: start: 20110801, end: 20120310
  4. ASPIRIN [Concomitant]

REACTIONS (8)
  - MALAISE [None]
  - VOMITING [None]
  - CARDIOVASCULAR DISORDER [None]
  - LACTIC ACIDOSIS [None]
  - HYPOGLYCAEMIA [None]
  - METABOLIC ACIDOSIS [None]
  - NAUSEA [None]
  - RENAL IMPAIRMENT [None]
